FAERS Safety Report 14708335 (Version 4)
Quarter: 2018Q2

REPORT INFORMATION
  Report Type: Spontaneous
  Country: TW (occurrence: TW)
  Receive Date: 20180403
  Receipt Date: 20180520
  Transmission Date: 20180711
  Serious: Yes (Hospitalization)
  Sender: FDA-Public Use
  Company Number: TW-ABBVIE-18K-153-2308901-00

PATIENT
  Age: 83 Year
  Sex: Male
  Weight: 48 kg

DRUGS (20)
  1. DUODOPA [Suspect]
     Active Substance: CARBIDOPA\LEVODOPA
     Dosage: MORNING DOSE: 13.64 ML;?CONTINUE DOSE: 2.8 ML/HOUR
     Route: 050
     Dates: start: 2018
  2. STALEVO [Concomitant]
     Active Substance: CARBIDOPA\ENTACAPONE\LEVODOPA
     Indication: PRODUCT USED FOR UNKNOWN INDICATION
     Dosage: 1 STRENGTH
     Dates: start: 20180426
  3. AMPICILLIN AND SULBACTAM [Concomitant]
     Active Substance: AMPICILLIN SODIUM\SULBACTAM SODIUM
     Indication: PROPHYLAXIS
     Route: 042
  4. RIVOTRIL [Concomitant]
     Active Substance: CLONAZEPAM
     Indication: PRODUCT USED FOR UNKNOWN INDICATION
     Dosage: 1 STRENGTH
     Dates: start: 20180426
  5. BEESIX [Concomitant]
     Indication: PRODUCT USED FOR UNKNOWN INDICATION
     Dates: start: 20180426
  6. SWITANE [Concomitant]
     Indication: PRODUCT USED FOR UNKNOWN INDICATION
     Dosage: EVERY NOON AND EVERY NIGHT, 0.5 STRENGTH
     Dates: start: 20180426
  7. CEFTRIAXONE. [Concomitant]
     Active Substance: CEFTRIAXONE
     Indication: PRODUCT USED FOR UNKNOWN INDICATION
     Dates: start: 20180504, end: 20180507
  8. DUODOPA [Suspect]
     Active Substance: CARBIDOPA\LEVODOPA
     Indication: PARKINSON^S DISEASE
     Route: 050
     Dates: start: 20180320, end: 2018
  9. OTILONIUM [Concomitant]
     Indication: IRRITABLE BOWEL SYNDROME
     Route: 048
  10. SINEMET [Concomitant]
     Active Substance: CARBIDOPA\LEVODOPA
     Indication: PARKINSON^S DISEASE
     Dosage: 1 STRENGTH
     Route: 048
     Dates: start: 20180426
  11. METHYCOBAL [Concomitant]
     Active Substance: METHYLCOBALAMIN
     Indication: PRODUCT USED FOR UNKNOWN INDICATION
     Dosage: 1 STRENGTH
     Dates: start: 20180426
  12. SENNOSIDE [Concomitant]
     Active Substance: SENNOSIDES
     Indication: PRODUCT USED FOR UNKNOWN INDICATION
     Dosage: 3 STRENGTH
     Dates: start: 20180426
  13. MGO [Concomitant]
     Active Substance: MAGNESIUM OXIDE
     Indication: PRODUCT USED FOR UNKNOWN INDICATION
     Dosage: 2 STRENGTH
     Dates: start: 20180514
  14. CEFOXITIN [Concomitant]
     Active Substance: CEFOXITIN SODIUM
     Indication: PRODUCT USED FOR UNKNOWN INDICATION
     Dates: start: 20180501, end: 20180501
  15. TAKEPRON [Concomitant]
     Active Substance: LANSOPRAZOLE
     Indication: PRODUCT USED FOR UNKNOWN INDICATION
     Dosage: 1 STRENGTH
     Dates: start: 20180426
  16. SEFTEM [Concomitant]
     Indication: PRODUCT USED FOR UNKNOWN INDICATION
     Dosage: 1 STRENGTH
     Dates: start: 20180507
  17. MIRAPEX [Concomitant]
     Active Substance: PRAMIPEXOLE DIHYDROCHLORIDE
     Indication: PARKINSON^S DISEASE
     Route: 048
  18. ERTAPENEM. [Concomitant]
     Active Substance: ERTAPENEM SODIUM
     Indication: PRODUCT USED FOR UNKNOWN INDICATION
     Dates: start: 20180502, end: 20180503
  19. ACETAMINOPHEN. [Concomitant]
     Active Substance: ACETAMINOPHEN
     Indication: PAIN
     Route: 048
  20. TAKEPRON [Concomitant]
     Active Substance: LANSOPRAZOLE
     Dosage: 1 STRENGTH
     Dates: start: 20180514

REACTIONS (13)
  - Unintentional medical device removal [Unknown]
  - Cholecystitis [Recovered/Resolved]
  - Hepatic cyst [Unknown]
  - Scoliosis [Unknown]
  - Cholecystitis [Recovering/Resolving]
  - Cholelithiasis [Unknown]
  - Ileus [Unknown]
  - Osteoporosis [Unknown]
  - Gallbladder enlargement [Unknown]
  - Post procedural haemorrhage [Recovered/Resolved]
  - Spinal osteoarthritis [Unknown]
  - Liver abscess [Unknown]
  - Constipation [Unknown]

NARRATIVE: CASE EVENT DATE: 20180329
